FAERS Safety Report 8776379 (Version 2)
Quarter: 2012Q4

REPORT INFORMATION
  Report Type: 
  Country: JP (occurrence: JP)
  Receive Date: 20120907
  Receipt Date: 20120921
  Transmission Date: 20130627
  Serious: Yes (Hospitalization, Other)
  Sender: FDA-Public Use
  Company Number: JP-PFIZER INC-2012217639

PATIENT
  Age: 61 Year
  Sex: Female

DRUGS (3)
  1. GABAPEN [Suspect]
     Indication: EPILEPSY
     Dosage: 1200 mg daily
     Route: 048
     Dates: start: 20120515, end: 201209
  2. GABAPEN [Suspect]
     Dosage: 200 mg, 1x/day before sleep
     Route: 048
     Dates: start: 201209, end: 201209
  3. VALPROATE SODIUM [Concomitant]
     Indication: EPILEPSY
     Dosage: UNK
     Route: 048
     Dates: start: 20111026

REACTIONS (2)
  - Dementia [Unknown]
  - Somnolence [Recovered/Resolved]
